FAERS Safety Report 4793734-0 (Version None)
Quarter: 2005Q4

REPORT INFORMATION
  Report Type: 
  Country: None (occurrence: None)
  Receive Date: 20051006
  Receipt Date: 20050922
  Transmission Date: 20060501
  Serious: Yes (Disabling)
  Sender: FDA-Public Use
  Company Number: 200500111

PATIENT
  Age: 53 Year
  Sex: Male

DRUGS (16)
  1. BOTOX [Suspect]
     Indication: TORTICOLLIS
     Dates: start: 19950101
  2. BOTOX [Suspect]
     Indication: TORTICOLLIS
     Dates: start: 20030101
  3. BOTOX [Suspect]
     Indication: TORTICOLLIS
     Dates: start: 20040101
  4. NEURONTIN [Concomitant]
  5. PROTONIX [Concomitant]
  6. TERAZOSIN HCL [Concomitant]
  7. PROSCAR [Concomitant]
  8. FLOMAX [Concomitant]
  9. KETOCONAZOLE [Concomitant]
  10. LUXIQ [Concomitant]
  11. HYDROCONE/ACETAMINOPHIN [Concomitant]
  12. OXYCODONE/ACETAMINOPHIN [Concomitant]
  13. PREDNISONE [Concomitant]
  14. ZITHROMAX [Concomitant]
  15. AMOXICILLIN [Concomitant]
  16. OXYCODONE/ACETAMINOPHIN [Concomitant]

REACTIONS (31)
  - ACTIVITIES OF DAILY LIVING IMPAIRED [None]
  - ASTHENIA [None]
  - BENIGN PROSTATIC HYPERPLASIA [None]
  - BLEPHARITIS [None]
  - BLOOD CHOLESTEROL INCREASED [None]
  - BURNING SENSATION [None]
  - DISTURBANCE IN ATTENTION [None]
  - DRUG INEFFECTIVE [None]
  - DYSLIPIDAEMIA [None]
  - DYSPEPSIA [None]
  - EYE IRRITATION [None]
  - EYE PRURITUS [None]
  - FATIGUE [None]
  - FORMICATION [None]
  - GASTROOESOPHAGEAL REFLUX DISEASE [None]
  - HYPERTENSION [None]
  - HYPOAESTHESIA [None]
  - INTERVERTEBRAL DISC PROTRUSION [None]
  - LOW DENSITY LIPOPROTEIN INCREASED [None]
  - MUSCULAR WEAKNESS [None]
  - NOCTURIA [None]
  - PAIN [None]
  - PAIN IN EXTREMITY [None]
  - PARAESTHESIA [None]
  - ROTATOR CUFF SYNDROME [None]
  - SOMNOLENCE [None]
  - SPINAL COMPRESSION FRACTURE [None]
  - SPINAL OSTEOARTHRITIS [None]
  - TENDON DISORDER [None]
  - THERAPY NON-RESPONDER [None]
  - TREMOR [None]
